FAERS Safety Report 4769010-9 (Version None)
Quarter: 2005Q3

REPORT INFORMATION
  Report Type: 
  Country: None (occurrence: None)
  Receive Date: 20050915
  Receipt Date: 20050906
  Transmission Date: 20060218
  Serious: Yes (Hospitalization)
  Sender: FDA-Public Use
  Company Number: US-ABBOTT-05P-163-0310372-00

PATIENT
  Sex: Female
  Weight: 59.928 kg

DRUGS (3)
  1. HUMIRA [Suspect]
     Indication: RHEUMATOID ARTHRITIS
     Route: 058
     Dates: start: 20050512
  2. LISINOPRIL [Concomitant]
     Indication: HYPERTENSION
     Route: 048
  3. NADOLOL [Concomitant]
     Indication: HYPERTENSION
     Route: 048

REACTIONS (1)
  - DEEP VEIN THROMBOSIS [None]
